FAERS Safety Report 9378366 (Version 1)
Quarter: 2013Q3

REPORT INFORMATION
  Report Type: Spontaneous
  Country: ES (occurrence: ES)
  Receive Date: 20130701
  Receipt Date: 20130701
  Transmission Date: 20140515
  Serious: Yes (Other)
  Sender: FDA-Public Use
  Company Number: ES-PFIZER INC-2013189540

PATIENT
  Age: 35 Year
  Sex: Male
  Weight: 71 kg

DRUGS (1)
  1. VIAGRA [Suspect]
     Indication: ERECTILE DYSFUNCTION
     Dosage: SILDENAFIL CITRATE 100 MG TABLET WAS SPLITTED IN FOUR PARTS AND PATIENT TOOK ONLY ONE PART AS NEEDED
     Route: 048
     Dates: start: 2002

REACTIONS (3)
  - Benign prostatic hyperplasia [Not Recovered/Not Resolved]
  - Prostatic calcification [Not Recovered/Not Resolved]
  - Pollakiuria [Not Recovered/Not Resolved]
